FAERS Safety Report 14122493 (Version 1)
Quarter: 2017Q4

REPORT INFORMATION
  Report Type: Spontaneous
  Country: US (occurrence: US)
  Receive Date: 20171024
  Receipt Date: 20171024
  Transmission Date: 20180321
  Serious: No
  Sender: FDA-Public Use
  Company Number: US-TEIKOKU PHARMA USA-TPU2017-00635

PATIENT
  Sex: Female
  Weight: 96.25 kg

DRUGS (7)
  1. LIDODERM [Suspect]
     Active Substance: LIDOCAINE
     Indication: PHANTOM PAIN
     Dosage: APPLY 1/2 PATCH AT NIGHTTIME, APPLIED TO THE LOWER LEG ALSO SOMETIMES APPLY THE OTHER HALF ON THE TH
     Route: 061
     Dates: start: 2005
  2. LIDOCAINE PATCH [Suspect]
     Active Substance: LIDOCAINE
     Indication: PHANTOM PAIN
     Route: 061
  3. OXYCODONE AND ACETAMINOPHEN [Concomitant]
     Active Substance: ACETAMINOPHEN\OXYCODONE HYDROCHLORIDE
     Indication: PAIN
     Dosage: 10/325 MG TABLET?1 TABLET AS NEEDED FOR PAIN
     Dates: start: 2012
  4. SYMBICORT [Concomitant]
     Active Substance: BUDESONIDE\FORMOTEROL FUMARATE DIHYDRATE
     Indication: ASTHMA
  5. PAIN INJECTION [Concomitant]
  6. ZOLPIDEM [Concomitant]
     Active Substance: ZOLPIDEM\ZOLPIDEM TARTRATE
     Indication: SLEEP DISORDER
     Dates: start: 2015
  7. PROAIR HFA [Concomitant]
     Active Substance: ALBUTEROL SULFATE
     Indication: ASTHMA

REACTIONS (2)
  - Intentional dose omission [Unknown]
  - Application site rash [Recovered/Resolved]
